FAERS Safety Report 12199995 (Version 2)
Quarter: 2020Q1

REPORT INFORMATION
  Report Type: Report from Study
  Country: CO (occurrence: CO)
  Receive Date: 20160322
  Receipt Date: 20200114
  Transmission Date: 20200409
  Serious: Yes (Hospitalization)
  Sender: FDA-Public Use
  Company Number: CO-JNJFOC-20151219551

PATIENT
  Age: 23 Year
  Sex: Female
  Weight: 65 kg

DRUGS (1)
  1. INVEGA SUSTENNA [Suspect]
     Active Substance: PALIPERIDONE PALMITATE
     Indication: SCHIZOPHRENIA
     Dosage: INTERVAL: 1 MINUTE
     Route: 030
     Dates: start: 20140123, end: 20151106

REACTIONS (1)
  - Electroconvulsive therapy [Recovered/Resolved with Sequelae]

NARRATIVE: CASE EVENT DATE: 20151125
